FAERS Safety Report 6398503-6 (Version None)
Quarter: 2009Q4

REPORT INFORMATION
  Report Type: 
  Country: None (occurrence: None)
  Receive Date: 20091013
  Receipt Date: 20091001
  Transmission Date: 20100525
  Serious: Yes (Hospitalization, Other)
  Sender: FDA-Public Use
  Company Number: DE-PFIZER INC-2007078567

PATIENT
  Age: 63 Year

DRUGS (4)
  1. SUNITINIB MALATE [Suspect]
     Indication: METASTATIC RENAL CELL CARCINOMA
     Dosage: 50 MG, UNK
     Route: 048
     Dates: start: 20060220, end: 20070912
  2. METOPROLOL ^WOLFF^ [Concomitant]
     Indication: HYPERTENSION
     Dates: start: 19970101
  3. FELODIPINE [Concomitant]
     Indication: HYPERTENSION
     Dates: start: 20050401
  4. FUROSEMID [Concomitant]
     Indication: HYPERTENSION
     Dates: start: 20060915

REACTIONS (3)
  - HYPOTHYROIDISM [None]
  - PROTEINURIA [None]
  - RHABDOMYOLYSIS [None]
